FAERS Safety Report 25412614 (Version 1)
Quarter: 2025Q2

REPORT INFORMATION
  Report Type: Spontaneous
  Country: US (occurrence: None)
  Receive Date: 20250607
  Receipt Date: 20250607
  Transmission Date: 20250716
  Serious: Yes (Hospitalization, Other)
  Sender: FDA-CTU
  Company Number: None

PATIENT
  Sex: Female
  Weight: 56.25 kg

DRUGS (4)
  1. DULOXETINE [Suspect]
     Active Substance: DULOXETINE
     Indication: Generalised anxiety disorder
     Route: 048
  2. GABAPENTIN [Concomitant]
     Active Substance: GABAPENTIN
  3. CLONAZEPAM [Concomitant]
     Active Substance: CLONAZEPAM
  4. PEPCID AC [Concomitant]
     Active Substance: FAMOTIDINE

REACTIONS (14)
  - Fear [None]
  - Panic attack [None]
  - Akathisia [None]
  - Electric shock sensation [None]
  - Vomiting [None]
  - Dyspepsia [None]
  - Insomnia [None]
  - Nausea [None]
  - Abdominal discomfort [None]
  - Intrusive thoughts [None]
  - Blunted affect [None]
  - Product communication issue [None]
  - Inappropriate schedule of product discontinuation [None]
  - Withdrawal syndrome [None]
